FAERS Safety Report 10635442 (Version 2)
Quarter: 2014Q4

REPORT INFORMATION
  Report Type: Spontaneous
  Country: US (occurrence: US)
  Receive Date: 20141205
  Receipt Date: 20141205
  Transmission Date: 20150529
  Serious: No
  Sender: FDA-Public Use
  Company Number: US-BIOMARINAP-US-2014-102544

PATIENT
  Age: 20 Year
  Sex: Female
  Weight: 53.95 kg

DRUGS (2)
  1. KUVAN [Suspect]
     Active Substance: SAPROPTERIN DIHYDROCHLORIDE
     Indication: PHENYLKETONURIA
     Dosage: 1100 MG, QD
     Route: 048
     Dates: start: 20080221
  2. NORTREL                            /00318901/ [Concomitant]
     Indication: PRODUCT USED FOR UNKNOWN INDICATION
     Dosage: 35 ?G, QD

REACTIONS (1)
  - Skin discolouration [Recovered/Resolved]

NARRATIVE: CASE EVENT DATE: 201401
